FAERS Safety Report 5533274-4 (Version None)
Quarter: 2007Q4

REPORT INFORMATION
  Report Type: 
  Country: None (occurrence: None)
  Receive Date: 20071204
  Receipt Date: 20071127
  Transmission Date: 20080405
  Serious: Yes (Hospitalization)
  Sender: FDA-Public Use
  Company Number: B0498078A

PATIENT
  Age: 78 Year
  Sex: Male

DRUGS (6)
  1. EPTIFIBATIDE [Suspect]
     Indication: ACUTE CORONARY SYNDROME
     Dosage: 6ML TWENTY FOUR TIMES PER DAY
     Route: 042
     Dates: start: 20071019, end: 20071023
  2. CARVEDILOL [Suspect]
     Indication: ACUTE CORONARY SYNDROME
     Dosage: 25MG TWICE PER DAY
     Route: 048
     Dates: start: 20071019, end: 20071107
  3. AMLODIPINE [Suspect]
     Indication: ACUTE CORONARY SYNDROME
     Dosage: 10MG PER DAY
     Route: 048
     Dates: start: 20071021, end: 20071107
  4. ACETYLSALICYLIC ACID SRT [Concomitant]
     Dates: start: 20071011
  5. RAMIPRIL [Concomitant]
     Dates: start: 20070705
  6. ATORVASTATIN [Concomitant]
     Dates: start: 20070705

REACTIONS (5)
  - ASTHENIA [None]
  - ATRIAL FIBRILLATION [None]
  - ATRIOVENTRICULAR BLOCK COMPLETE [None]
  - BRADYCARDIA [None]
  - DIZZINESS [None]
